FAERS Safety Report 12142544 (Version 1)
Quarter: 2016Q1

REPORT INFORMATION
  Report Type: Spontaneous
  Country: CA (occurrence: CA)
  Receive Date: 20160303
  Receipt Date: 20160303
  Transmission Date: 20160526
  Serious: Yes (Death)
  Sender: FDA-Public Use
  Company Number: CA-TEVA-639332ACC

PATIENT
  Age: 34 Year
  Sex: Female
  Weight: 100 kg

DRUGS (5)
  1. WARFARIN [Concomitant]
     Active Substance: WARFARIN
  2. CLONAZEPAM. [Concomitant]
     Active Substance: CLONAZEPAM
  3. VENLAFAXINE XR [Suspect]
     Active Substance: VENLAFAXINE HYDROCHLORIDE
     Indication: PRODUCT USED FOR UNKNOWN INDICATION
     Route: 065
  4. RISPERIDONE. [Concomitant]
     Active Substance: RISPERIDONE
  5. METHOTRIMEPRAZINE [Suspect]
     Active Substance: LEVOMEPROMAZINE
     Route: 065

REACTIONS (2)
  - Unresponsive to stimuli [Fatal]
  - Drug level above therapeutic [Fatal]
